FAERS Safety Report 5160148-3 (Version None)
Quarter: 2006Q4

REPORT INFORMATION
  Report Type: 
  Country: None (occurrence: None)
  Receive Date: 20061129
  Receipt Date: 20061031
  Transmission Date: 20070319
  Serious: Yes (Hospitalization)
  Sender: FDA-Public Use
  Company Number: JP-MERCK-0611USA00753

PATIENT
  Age: 21 Year
  Sex: Female

DRUGS (5)
  1. COZAAR [Suspect]
     Route: 048
     Dates: start: 20061020, end: 20061101
  2. ACTONEL [Suspect]
     Route: 048
     Dates: start: 20061002, end: 20061101
  3. PERSANTIN [Concomitant]
     Route: 065
     Dates: end: 20061101
  4. SUCRALFATE [Concomitant]
     Route: 065
     Dates: end: 20061101
  5. PREDONINE [Concomitant]
     Route: 048
     Dates: end: 20061101

REACTIONS (2)
  - HAEMOLYTIC ANAEMIA [None]
  - PLATELET COUNT DECREASED [None]
